FAERS Safety Report 24049117 (Version 1)
Quarter: 2024Q3

REPORT INFORMATION
  Report Type: Spontaneous
  Country: US (occurrence: US)
  Receive Date: 20240704
  Receipt Date: 20240704
  Transmission Date: 20241017
  Serious: Yes (Other)
  Sender: ZYDUS PHARM
  Company Number: US-CADILA HEALTHCARE LIMITED-US-ZYDUS-108868

PATIENT

DRUGS (1)
  1. TAMOXIFEN [Suspect]
     Active Substance: TAMOXIFEN
     Indication: Adjuvant therapy
     Dosage: 20 MILLIGRAM, QD, (FOR 5 YEARS WITH TOTAL DOSE 36.5 GRAM UPON TREATMENT COMPLETION)
     Route: 048

REACTIONS (1)
  - Macular hole [Not Recovered/Not Resolved]
